FAERS Safety Report 20026431 (Version 1)
Quarter: 2021Q4

REPORT INFORMATION
  Report Type: Spontaneous
  Country: CN (occurrence: CN)
  Receive Date: 20211102
  Receipt Date: 20211102
  Transmission Date: 20220303
  Serious: Yes (Life-Threatening, Other)
  Sender: FDA-Public Use
  Company Number: CN-GE HEALTHCARE-2021CSU005339

PATIENT

DRUGS (3)
  1. VISIPAQUE [Suspect]
     Active Substance: IODIXANOL
     Indication: Computerised tomogram abdomen
     Dosage: 70 ML, SINGLE
     Route: 042
     Dates: start: 20190910, end: 20190910
  2. VISIPAQUE [Suspect]
     Active Substance: IODIXANOL
     Indication: Diarrhoea
  3. VISIPAQUE [Suspect]
     Active Substance: IODIXANOL
     Indication: Abdominal distension

REACTIONS (2)
  - Coagulation test abnormal [Recovered/Resolved]
  - Anaphylactic shock [Recovered/Resolved]

NARRATIVE: CASE EVENT DATE: 20190910
